FAERS Safety Report 9299969 (Version 1)
Quarter: 2013Q1

REPORT INFORMATION
  Report Type: Spontaneous
  Country: US (occurrence: None)
  Receive Date: 20121231
  Receipt Date: 20121231
  Transmission Date: 20140127
  Serious: Yes (Disabling)
  Sender: FDA-Public Use
  Company Number: RB-45764-2012

PATIENT
  Sex: Male

DRUGS (1)
  1. SUBOXONE [Suspect]
     Dosage: SUBOXONE FILM; 2 AND 1/4 , 8MG/2MG STRIPS DAILY UNKNOWN)?

REACTIONS (3)
  - Road traffic accident [None]
  - Off label use [None]
  - Wrong technique in drug usage process [None]
